FAERS Safety Report 9003954 (Version 1)
Quarter: 2013Q1

REPORT INFORMATION
  Report Type: Spontaneous
  Country: US (occurrence: US)
  Receive Date: 20130109
  Receipt Date: 20130109
  Transmission Date: 20140127
  Serious: No
  Sender: FDA-Public Use
  Company Number: US-009507513-1301USA000114

PATIENT
  Age: 89 Year
  Sex: Female

DRUGS (3)
  1. COSOPT [Suspect]
     Indication: GLAUCOMA
     Dosage: 2 GTT, BID
     Route: 047
     Dates: start: 20121224
  2. FOSAMAX [Concomitant]
  3. ASPIRIN [Concomitant]

REACTIONS (2)
  - Superficial injury of eye [Not Recovered/Not Resolved]
  - Product dropper issue [Unknown]
